FAERS Safety Report 5394195-3 (Version None)
Quarter: 2007Q3

REPORT INFORMATION
  Report Type: 
  Country: None (occurrence: None)
  Receive Date: 20070723
  Receipt Date: 20070409
  Transmission Date: 20080115
  Serious: No
  Sender: FDA-Public Use
  Company Number: A0646272A

PATIENT
  Age: 59 Year
  Sex: Male

DRUGS (7)
  1. AVANDIA [Suspect]
     Dosage: 8MG PER DAY
     Route: 048
     Dates: start: 20020101
  2. ATENOLOL [Concomitant]
  3. MONOPRIL [Concomitant]
  4. GLUCOPHAGE [Concomitant]
  5. GLUCOTROL [Concomitant]
  6. LIPITOR [Concomitant]
  7. INSULIN [Concomitant]

REACTIONS (2)
  - DRUG INEFFECTIVE [None]
  - JOINT SWELLING [None]
